FAERS Safety Report 4908428-8 (Version None)
Quarter: 2006Q1

REPORT INFORMATION
  Report Type: 
  Country: None (occurrence: None)
  Receive Date: 20060210
  Receipt Date: 20060131
  Transmission Date: 20060701
  Serious: Yes (Other)
  Sender: FDA-Public Use
  Company Number: JP-BRISTOL-MYERS SQUIBB COMPANY-13268834

PATIENT
  Age: 80 Year
  Sex: Female

DRUGS (1)
  1. FUNGIZONE [Suspect]
     Indication: GASTROINTESTINAL CANDIDIASIS
     Route: 048
     Dates: start: 20060120, end: 20060120

REACTIONS (1)
  - SKIN EXFOLIATION [None]
